FAERS Safety Report 19454097 (Version 4)
Quarter: 2021Q3

REPORT INFORMATION
  Report Type: Spontaneous
  Country: US (occurrence: US)
  Receive Date: 20210623
  Receipt Date: 20210827
  Transmission Date: 20211014
  Serious: No
  Sender: FDA-Public Use
  Company Number: US-PFIZER INC-2021612063

PATIENT
  Age: 18 Month
  Sex: Male

DRUGS (2)
  1. GENOTROPIN [Suspect]
     Active Substance: SOMATROPIN
     Indication: HORMONE LEVEL ABNORMAL
     Dosage: 0.1MG EVERY OTHER DAY ALTERNATING WITH 0.2MG BY INJECTION
  2. GENOTROPIN [Suspect]
     Active Substance: SOMATROPIN
     Dosage: 0.1MG EVERY OTHER DAY ALTERNATING WITH 0.2MG BY INJECTION

REACTIONS (8)
  - Off label use [Unknown]
  - Pyrexia [Recovered/Resolved]
  - Device leakage [Unknown]
  - Product use issue [Unknown]
  - Device issue [Unknown]
  - Device breakage [Unknown]
  - Device mechanical issue [Unknown]
  - Drug dose omission by device [Unknown]

NARRATIVE: CASE EVENT DATE: 202105
